FAERS Safety Report 19417644 (Version 1)
Quarter: 2021Q2

REPORT INFORMATION
  Report Type: Spontaneous
  Country: US (occurrence: US)
  Receive Date: 20210615
  Receipt Date: 20210615
  Transmission Date: 20210717
  Serious: Yes (Life-Threatening)
  Sender: FDA-Public Use
  Company Number: None

PATIENT
  Age: 19 Year
  Sex: Male
  Weight: 73.8 kg

DRUGS (3)
  1. FLUOXETINE 60 MG TABLET [Concomitant]
  2. MONTELUKAST [Suspect]
     Active Substance: MONTELUKAST SODIUM
     Dates: start: 20210610, end: 20210610
  3. CLONAZEPAM 2 MG TABLET [Concomitant]
     Active Substance: CLONAZEPAM

REACTIONS (1)
  - Suicide attempt [None]

NARRATIVE: CASE EVENT DATE: 20210610
